FAERS Safety Report 18591263 (Version 5)
Quarter: 2021Q3

REPORT INFORMATION
  Report Type: Report from Study
  Country: JP (occurrence: JP)
  Receive Date: 20201208
  Receipt Date: 20210902
  Transmission Date: 20211014
  Serious: Yes (Other)
  Sender: FDA-Public Use
  Company Number: JP-JNJFOC-A-CH2018-184259

PATIENT
  Age: 4 Year
  Sex: Female
  Weight: 13.3 kg

DRUGS (25)
  1. OPSUMIT [Suspect]
     Active Substance: MACITENTAN
     Indication: PULMONARY ARTERIAL HYPERTENSION
     Dosage: 1 MG, QD
     Route: 048
     Dates: start: 20160617, end: 20160715
  2. FERROUS SODIUM CITRATE [Concomitant]
     Active Substance: SODIUM FERROUS CITRATE
     Indication: ANAEMIA
     Route: 048
     Dates: start: 20190118
  3. OPSUMIT [Suspect]
     Active Substance: MACITENTAN
     Dosage: 2 MG, QD
     Route: 048
     Dates: start: 20160715, end: 20160812
  4. OPSUMIT [Suspect]
     Active Substance: MACITENTAN
     Dosage: 1 MG, QD
     Route: 048
     Dates: start: 20180106, end: 20180511
  5. OPSUMIT [Suspect]
     Active Substance: MACITENTAN
     Route: 048
     Dates: start: 20180512, end: 20181108
  6. UPTRAVI [Suspect]
     Active Substance: SELEXIPAG
     Indication: PULMONARY ARTERIAL HYPERTENSION
     Dosage: 0.25 DF, BID
     Route: 048
     Dates: start: 20171215, end: 20180105
  7. UPTRAVI [Suspect]
     Active Substance: SELEXIPAG
     Route: 048
     Dates: start: 20180728, end: 20180824
  8. UPTRAVI [Suspect]
     Active Substance: SELEXIPAG
     Route: 048
     Dates: start: 20181215, end: 20190927
  9. UPTRAVI [Suspect]
     Active Substance: SELEXIPAG
     Dosage: 0.375 DF, BID
     Route: 048
     Dates: start: 20180105, end: 20180302
  10. UPTRAVI [Suspect]
     Active Substance: SELEXIPAG
     Dosage: 0.75 DF, BID
     Route: 048
     Dates: start: 20180302, end: 20180330
  11. UPTRAVI [Suspect]
     Active Substance: SELEXIPAG
     Route: 048
     Dates: start: 20180922, end: 20181214
  12. UPTRAVI [Suspect]
     Active Substance: SELEXIPAG
     Route: 048
     Dates: start: 20190928
  13. OPSUMIT [Suspect]
     Active Substance: MACITENTAN
     Dosage: IN THE MORNING
     Route: 048
     Dates: start: 20190302
  14. ADCIRCA [Concomitant]
     Active Substance: TADALAFIL
     Route: 048
  15. MAGNESIUM OXIDE. [Concomitant]
     Active Substance: MAGNESIUM OXIDE
     Route: 048
     Dates: start: 20161007, end: 20180511
  16. UPTRAVI [Suspect]
     Active Substance: SELEXIPAG
     Dosage: 1 DF, BID
     Route: 048
     Dates: start: 20180330, end: 20180727
  17. UPTRAVI [Suspect]
     Active Substance: SELEXIPAG
     Route: 048
     Dates: start: 20180825, end: 20180921
  18. OPSUMIT [Suspect]
     Active Substance: MACITENTAN
     Dosage: 2.5 MG, QD
     Route: 048
     Dates: start: 20160812, end: 20180105
  19. OPSUMIT [Suspect]
     Active Substance: MACITENTAN
     Dosage: IN THE MORNING
     Route: 048
     Dates: start: 20181109, end: 20190301
  20. ADCIRCA [Concomitant]
     Active Substance: TADALAFIL
     Indication: PULMONARY ARTERIAL HYPERTENSION
     Dosage: 1?2TAB IN 2 DIVIDED DOSES
     Route: 048
     Dates: start: 20160617
  21. ADCIRCA [Concomitant]
     Active Substance: TADALAFIL
     Dosage: 1?2TABX1TIME/DAY
     Route: 048
  22. MAGLAX [Concomitant]
     Active Substance: MAGNESIUM OXIDE
     Indication: CONSTIPATION
     Dosage: 0.5 G, QD
     Route: 048
     Dates: end: 20180510
  23. DORNER [Concomitant]
     Active Substance: BERAPROST SODIUM
     Indication: PULMONARY ARTERIAL HYPERTENSION
     Route: 048
     Dates: start: 20171006, end: 20171215
  24. MAGNESIUM OXIDE. [Concomitant]
     Active Substance: MAGNESIUM OXIDE
     Indication: CONSTIPATION PROPHYLAXIS
     Route: 048
     Dates: start: 20171006, end: 20171215
  25. OXYGEN. [Concomitant]
     Active Substance: OXYGEN
     Indication: PRODUCT USED FOR UNKNOWN INDICATION
     Dosage: DOSE UNKNOWN
     Route: 055

REACTIONS (4)
  - Platelet count decreased [Recovered/Resolved]
  - Anaemia [Recovering/Resolving]
  - Product use issue [Unknown]
  - Off label use [Unknown]

NARRATIVE: CASE EVENT DATE: 20161007
